FAERS Safety Report 7940064-1 (Version None)
Quarter: 2011Q4

REPORT INFORMATION
  Report Type: 
  Country: None (occurrence: None)
  Receive Date: 20111125
  Receipt Date: 20111115
  Transmission Date: 20120403
  Serious: Yes (Hospitalization)
  Sender: FDA-Public Use
  Company Number: PHHY2011CA101255

PATIENT
  Sex: Female

DRUGS (1)
  1. SANDOSTATIN LAR [Suspect]
     Indication: INTESTINAL ADENOCARCINOMA
     Dosage: 20 MG, QMO
     Route: 030
     Dates: start: 20110826

REACTIONS (2)
  - TOOTH FRACTURE [None]
  - FALL [None]
